FAERS Safety Report 9338683 (Version 1)
Quarter: 2013Q2

REPORT INFORMATION
  Report Type: Report from Study
  Country: CN (occurrence: CN)
  Receive Date: 20130610
  Receipt Date: 20130610
  Transmission Date: 20140414
  Serious: Yes (Other)
  Sender: FDA-Public Use
  Company Number: CN-ROCHE-1234590

PATIENT
  Sex: Female

DRUGS (3)
  1. PEGASYS [Suspect]
     Indication: HEPATITIS C
     Route: 058
     Dates: start: 20120606, end: 2012
  2. PEGASYS [Suspect]
     Route: 058
     Dates: start: 2012, end: 2013
  3. PEGASYS [Suspect]
     Route: 058
     Dates: start: 2013, end: 20130515

REACTIONS (2)
  - Syncope [Unknown]
  - Anaemia [Unknown]
